FAERS Safety Report 7263189-5 (Version None)
Quarter: 2011Q1

REPORT INFORMATION
  Report Type: 
  Country: None (occurrence: None)
  Receive Date: 20110130
  Receipt Date: 20101013
  Transmission Date: 20110831
  Serious: No
  Sender: FDA-Public Use
  Company Number: US-ABBOTT-10P-163-0677915-00

PATIENT
  Age: 33 Year
  Sex: Female

DRUGS (20)
  1. OXYCODONE [Concomitant]
     Indication: PAIN
     Dosage: AS REQUIRED
     Route: 048
  2. NEUROPAX [Concomitant]
     Indication: RESTLESS LEGS SYNDROME
     Dosage: EVERY NIGHT
     Route: 048
  3. IMITREX [Concomitant]
     Indication: MIGRAINE
     Route: 048
  4. ACYCLOVIR [Concomitant]
     Indication: GENITAL HERPES
     Route: 048
  5. ZOVIRAX [Concomitant]
     Indication: GENITAL HERPES
  6. CALCIUM [Concomitant]
     Indication: PRODUCT USED FOR UNKNOWN INDICATION
     Route: 048
  7. ZOFRAN [Concomitant]
     Indication: NAUSEA
     Dosage: EVERY 8 HOURS
     Route: 048
  8. HUMIRA [Suspect]
     Indication: CROHN'S DISEASE
     Dates: start: 20101011
  9. VITAMIN B-12 [Concomitant]
     Indication: PRODUCT USED FOR UNKNOWN INDICATION
     Route: 048
  10. XANAX [Concomitant]
     Indication: ANXIETY
     Dosage: AS REQUIRED
     Route: 048
  11. FOLIC ACID [Concomitant]
     Indication: PRODUCT USED FOR UNKNOWN INDICATION
     Route: 048
  12. WELLBUTRIN [Concomitant]
     Indication: SMOKING CESSATION THERAPY
  13. VITAMIN D [Concomitant]
     Indication: PRODUCT USED FOR UNKNOWN INDICATION
     Route: 048
  14. LIALDA [Concomitant]
     Indication: PRODUCT USED FOR UNKNOWN INDICATION
  15. IRON [Concomitant]
     Indication: PRODUCT USED FOR UNKNOWN INDICATION
     Route: 048
  16. AMBIEN [Concomitant]
     Indication: INSOMNIA
     Dosage: EVERY NIGHT
     Route: 048
  17. MULTI-VITAMIN [Concomitant]
     Indication: PRODUCT USED FOR UNKNOWN INDICATION
     Route: 048
  18. WELLBUTRIN [Concomitant]
     Indication: DEPRESSION
     Route: 048
  19. NEXIUM [Concomitant]
     Indication: GASTROOESOPHAGEAL REFLUX DISEASE
     Route: 048
  20. MIRALAX [Concomitant]
     Indication: CONSTIPATION

REACTIONS (3)
  - NAUSEA [None]
  - ABDOMINAL PAIN [None]
  - INAPPROPRIATE SCHEDULE OF DRUG ADMINISTRATION [None]
